FAERS Safety Report 4314665-6 (Version None)
Quarter: 2004Q1

REPORT INFORMATION
  Report Type: 
  Country: None (occurrence: None)
  Receive Date: 20040308
  Receipt Date: 20040226
  Transmission Date: 20041129
  Serious: Yes (Hospitalization)
  Sender: FDA-Public Use
  Company Number: 2003111112

PATIENT
  Age: 81 Year
  Sex: Male
  Weight: 66 kg

DRUGS (3)
  1. GLIPIZIDE [Suspect]
     Indication: DIABETES MELLITUS NON-INSULIN-DEPENDENT
     Dosage: 5 MG (BID), ORAL
     Route: 048
  2. DIPYRIDAMOLE [Concomitant]
  3. PRAVASTATIN SODIUM [Concomitant]

REACTIONS (10)
  - AGITATION [None]
  - CARDIAC DISORDER [None]
  - CARDIOMEGALY [None]
  - CEREBRAL ATROPHY [None]
  - CHEST X-RAY ABNORMAL [None]
  - CONVULSION [None]
  - ELECTROCARDIOGRAM ABNORMAL [None]
  - HYPOGLYCAEMIA [None]
  - NORMOCHROMIC NORMOCYTIC ANAEMIA [None]
  - TREMOR [None]
